FAERS Safety Report 9855996 (Version 5)
Quarter: 2014Q2

REPORT INFORMATION
  Report Type: Report from Study
  Country: US (occurrence: US)
  Receive Date: 20140130
  Receipt Date: 20140527
  Transmission Date: 20141212
  Serious: Yes (Other)
  Sender: FDA-Public Use
  Company Number: US-PFIZER INC-2014019932

PATIENT
  Age: 77 Year
  Sex: Male
  Weight: 75.3 kg

DRUGS (11)
  1. AXITINIB [Suspect]
     Indication: PROSTATE CANCER
     Dosage: 5 MG, 2X/DAY ON A 2 WEEKS ON AND 1 WEEK OFF SCHEDULE
     Route: 048
     Dates: start: 20121230, end: 20140102
  2. AXITINIB [Suspect]
     Dosage: 5 MG, 2X/DAY ON A 2 WEEKS ON AND 1 WEEK OFF SCHEDULE
     Route: 048
     Dates: start: 20140110, end: 20140123
  3. AXITINIB [Suspect]
     Dosage: 5 MG, 2X/DAY ON A 2 WEEKS ON AND 1 WEEK OFF SCHEDULE
     Route: 048
     Dates: start: 20140131, end: 20140213
  4. HYDROCHLOROTHIAZIDE/LISINOPRIL [Suspect]
     Indication: HYPERTENSION
     Dosage: 1 DF (TABLET), 1X/DAY
     Route: 048
     Dates: start: 2005, end: 20131222
  5. HYDROCHLOROTHIAZIDE/LISINOPRIL [Suspect]
     Dosage: 2 DF, TABLETS, (20/25), 2X/DAY
     Route: 048
     Dates: start: 20131223
  6. LASIX [Concomitant]
     Indication: OEDEMA PERIPHERAL
     Dosage: 20 MG, AS NEEDED
     Route: 048
     Dates: start: 201309
  7. LUPRON [Concomitant]
     Indication: PROSTATE CANCER
     Dosage: 45 MG, Q 6 MONTHS
     Route: 030
     Dates: start: 2005
  8. LOPERAMIDE [Concomitant]
     Indication: DIARRHOEA
     Dosage: 2 MG, AS NEEDED
     Route: 048
  9. POTASSIUM CHLORIDE [Concomitant]
     Indication: SUPPLEMENTATION THERAPY
     Dosage: 20 MEQ, DAILY
     Route: 048
     Dates: start: 201309
  10. OMEPRAZOLE [Concomitant]
     Indication: DYSPEPSIA
     Dosage: 20 MG, DAILY
     Route: 048
     Dates: end: 20131210
  11. RANITIDINE [Concomitant]
     Indication: DYSPEPSIA
     Dosage: 150 MG, DAILY
     Route: 048
     Dates: start: 20131210

REACTIONS (3)
  - Electrocardiogram QT prolonged [Not Recovered/Not Resolved]
  - Metastases to bone [None]
  - Supraventricular extrasystoles [None]
